FAERS Safety Report 10462319 (Version 11)
Quarter: 2020Q1

REPORT INFORMATION
  Report Type: Spontaneous
  Country: US (occurrence: US)
  Receive Date: 20140918
  Receipt Date: 20200311
  Transmission Date: 20200409
  Serious: Yes (Hospitalization, Other)
  Sender: FDA-Public Use
  Company Number: US-PFIZER INC-2014254403

PATIENT
  Age: 53 Year
  Sex: Female
  Weight: 79 kg

DRUGS (19)
  1. LYRICA [Suspect]
     Active Substance: PREGABALIN
     Indication: FIBROMYALGIA
     Dosage: 150 MG, AS NEEDED (THREE TIMES A DAY)
     Route: 048
  2. PROTONIX [OMEPRAZOLE] [Concomitant]
     Active Substance: OMEPRAZOLE
     Indication: GASTRIC ULCER
     Dosage: 40 MG, 1X/DAY
  3. MAGNESIUM [Concomitant]
     Active Substance: MAGNESIUM
     Dosage: UNK
  4. VENLAFAXINE [Concomitant]
     Active Substance: VENLAFAXINE HYDROCHLORIDE
     Dosage: 75 MG, 3X/DAY
     Route: 048
  5. ALPRAZOLAM. [Concomitant]
     Active Substance: ALPRAZOLAM
     Indication: ANXIETY
     Dosage: 0.5 MG, AS NEEDED (THREE TIMES A DAY)
     Route: 048
  6. ESTRADIOL. [Concomitant]
     Active Substance: ESTRADIOL
     Indication: HORMONE THERAPY
     Dosage: 1 MG, DAILY (WITH WATER )
     Route: 048
  7. HYDROMORPHONE [Concomitant]
     Active Substance: HYDROMORPHONE
     Dosage: 2 MG, UNK
  8. LYRICA [Suspect]
     Active Substance: PREGABALIN
     Indication: MYALGIA
     Dosage: 150 MG, 3X/DAY
     Route: 048
     Dates: end: 202001
  9. DOXEPIN [Concomitant]
     Active Substance: DOXEPIN
     Dosage: 25 MG, 1X/DAY (AT BEDTIME)
     Route: 048
  10. ACETAMINOPHEN W/HYDROCODONE [Concomitant]
     Active Substance: ACETAMINOPHEN\HYDROCODONE
     Dosage: 1 DF, EVERY 6-8 HRS (325 MG-7.5 MG)
     Route: 048
  11. ALPRAZOLAM. [Concomitant]
     Active Substance: ALPRAZOLAM
     Indication: PANIC ATTACK
     Dosage: 1 MG, 3X/DAY
  12. RANITIDINE. [Concomitant]
     Active Substance: RANITIDINE
     Dosage: 150 MG, 2X/DAY
     Route: 048
  13. MELOXICAM. [Concomitant]
     Active Substance: MELOXICAM
     Dosage: 15 MG, DAILY (WITH WATER AND FOOD)
     Route: 048
  14. GABAPENTIN. [Concomitant]
     Active Substance: GABAPENTIN
     Dosage: 600 MG, 3X/DAY
     Route: 048
  15. ESTRADIOL. [Concomitant]
     Active Substance: ESTRADIOL
     Dosage: 1 MG, 1X/DAY
  16. DEXTROMETHORPHAN W/PROMETHAZINE [Concomitant]
     Active Substance: DEXTROMETHORPHAN\PROMETHAZINE
     Dosage: 5 ML, 4X/DAY (EVERY 6 HOURS)
     Route: 048
  17. LYRICA [Suspect]
     Active Substance: PREGABALIN
     Indication: NEURALGIA
     Dosage: 150 MG, 3X/DAY
     Route: 048
     Dates: start: 2003
  18. LYRICA [Suspect]
     Active Substance: PREGABALIN
     Indication: DIABETIC NEUROPATHY
     Dosage: 150 MG, 3X/DAY
     Dates: start: 20190220
  19. EFFEXOR [Concomitant]
     Active Substance: VENLAFAXINE HYDROCHLORIDE
     Indication: DEPRESSION
     Dosage: 150 MG, 1X/DAY

REACTIONS (10)
  - Gallbladder disorder [Not Recovered/Not Resolved]
  - Weight increased [Unknown]
  - Pneumonia [Unknown]
  - Intentional product use issue [Unknown]
  - Face oedema [Unknown]
  - Withdrawal syndrome [Unknown]
  - Mobility decreased [Unknown]
  - Pain [Not Recovered/Not Resolved]
  - Oedema [Unknown]
  - Oedema peripheral [Unknown]
